FAERS Safety Report 7630344-1 (Version None)
Quarter: 2011Q3

REPORT INFORMATION
  Report Type: 
  Country: None (occurrence: None)
  Receive Date: 20110722
  Receipt Date: 20110711
  Transmission Date: 20111222
  Serious: Yes (Hospitalization)
  Sender: FDA-Public Use
  Company Number: US-BAYER-2011-014780

PATIENT
  Age: 19 Year
  Sex: Female
  Weight: 90.703 kg

DRUGS (5)
  1. ZEGERID [Concomitant]
     Indication: GASTROOESOPHAGEAL REFLUX DISEASE
     Dosage: 40 MG, UNK
  2. PROTONIX [Concomitant]
     Indication: GASTRIC PH INCREASED
     Dosage: UNK
     Dates: start: 20070101
  3. KEFLEX [Concomitant]
     Dosage: 500 MG, BID
  4. YAZ [Suspect]
     Indication: CONTRACEPTION
     Dosage: QD, RECEIVED ONE SAMPLE A MONTH FOR A YEAR AND A HALF FROM HCP
     Dates: start: 20070521, end: 20090101
  5. YAZ [Suspect]
     Indication: ACNE

REACTIONS (4)
  - CHOLECYSTITIS CHRONIC [None]
  - VOMITING [None]
  - ABDOMINAL PAIN UPPER [None]
  - DIARRHOEA [None]
